FAERS Safety Report 14795109 (Version 7)
Quarter: 2018Q2

REPORT INFORMATION
  Report Type: Spontaneous
  Country: CZ (occurrence: CZ)
  Receive Date: 20180423
  Receipt Date: 20180620
  Transmission Date: 20180711
  Serious: Yes (Life-Threatening, Hospitalization)
  Sender: FDA-Public Use
  Company Number: CZ-PFIZER INC-2018162505

PATIENT
  Sex: Male

DRUGS (9)
  1. LEVOPROMAZIN [Interacting]
     Active Substance: LEVOMEPROMAZINE
     Dosage: UNK
     Route: 048
  2. OLANZAPINE. [Interacting]
     Active Substance: OLANZAPINE
     Dosage: UNK
     Route: 048
  3. VENLAFAXINE HCL [Suspect]
     Active Substance: VENLAFAXINE HYDROCHLORIDE
     Dosage: UNK
     Route: 048
  4. METOCLOPRAMIDE. [Interacting]
     Active Substance: METOCLOPRAMIDE
     Dosage: UNK
     Route: 048
  5. AMPHETAMINE [Interacting]
     Active Substance: AMPHETAMINE
     Dosage: UNK
  6. IBUPROFEN. [Interacting]
     Active Substance: IBUPROFEN
     Dosage: UNK
     Route: 065
  7. ESCITALOPRAM [Interacting]
     Active Substance: ESCITALOPRAM OXALATE
     Dosage: UNK
     Route: 048
  8. MELPERONE [Interacting]
     Active Substance: MELPERONE
     Dosage: UNK
     Route: 048
  9. CLONAZEPAM. [Interacting]
     Active Substance: CLONAZEPAM
     Dosage: UNK
     Route: 048

REACTIONS (7)
  - Poisoning [Unknown]
  - Epilepsy [Unknown]
  - Electrocardiogram QT prolonged [Recovered/Resolved]
  - Drug interaction [Unknown]
  - Loss of consciousness [Recovered/Resolved]
  - Overdose [Unknown]
  - Diarrhoea [Unknown]
